FAERS Safety Report 17297256 (Version 1)
Quarter: 2020Q1

REPORT INFORMATION
  Report Type: Spontaneous
  Country: US (occurrence: US)
  Receive Date: 20200121
  Receipt Date: 20200121
  Transmission Date: 20200409
  Serious: Yes (Other)
  Sender: FDA-Public Use
  Company Number: US-APRECIA PHARMACEUTICALS-APRE20200001

PATIENT
  Age: 9 Year
  Sex: Female

DRUGS (2)
  1. SPRITAM [Suspect]
     Active Substance: LEVETIRACETAM
     Indication: SEIZURE
     Dosage: 500 MG IN THE AM AND 1000 MG IN THE PM
     Route: 048
     Dates: start: 20191205, end: 20200103
  2. MUCINEX [Concomitant]
     Active Substance: GUAIFENESIN
     Indication: NASOPHARYNGITIS
     Dosage: UNKNOWN
     Route: 065
     Dates: start: 20191223

REACTIONS (3)
  - Unresponsive to stimuli [Recovered/Resolved]
  - Movement disorder [Recovered/Resolved]
  - Skin disorder [Recovered/Resolved]

NARRATIVE: CASE EVENT DATE: 201912
